FAERS Safety Report 9877688 (Version 2)
Quarter: 2014Q1

REPORT INFORMATION
  Report Type: Spontaneous
  Country: US (occurrence: US)
  Receive Date: 20140206
  Receipt Date: 20140206
  Transmission Date: 20141002
  Serious: No
  Sender: FDA-Public Use
  Company Number: US-ACORDA-ACO_38595_2013

PATIENT
  Age: 56 Year
  Sex: Female
  Weight: 67.57 kg

DRUGS (8)
  1. AMPYRA [Suspect]
     Indication: GAIT DISTURBANCE
     Dosage: 10 MG, BID
     Route: 048
     Dates: start: 20130913, end: 20130914
  2. ALBUTEROL [Concomitant]
     Indication: ASTHMA
     Dosage: 2.5 MG, PRN
     Route: 055
  3. ADVAIR [Concomitant]
     Indication: ASTHMA
     Dosage: UNK UNK, QD
     Route: 055
  4. MOBIC [Concomitant]
     Indication: ARTHRITIS
     Dosage: 15 MG, QD
     Route: 048
  5. CELEXA [Concomitant]
     Indication: DEPRESSION
     Dosage: 40 MG, QD
     Route: 048
     Dates: start: 20120419
  6. SYNTHROID [Concomitant]
     Indication: HYPOTHYROIDISM
     Dosage: 50 ?G, QD
     Route: 048
  7. REBIF [Concomitant]
     Indication: MULTIPLE SCLEROSIS
     Dosage: 22 ?G, TIW
     Route: 058
     Dates: start: 2009
  8. GLUCOSAMINE [Concomitant]
     Indication: ARTHRITIS
     Dosage: UNK

REACTIONS (3)
  - Mental impairment [Recovered/Resolved]
  - Feeling abnormal [Recovered/Resolved]
  - Confusional state [Recovered/Resolved]
